FAERS Safety Report 6151479-9 (Version None)
Quarter: 2009Q2

REPORT INFORMATION
  Report Type: 
  Country: None (occurrence: None)
  Receive Date: 20090410
  Receipt Date: 20090403
  Transmission Date: 20091009
  Serious: Yes (Hospitalization, Other)
  Sender: FDA-Public Use
  Company Number: DE-AMGEN-QUU336839

PATIENT
  Sex: Female

DRUGS (5)
  1. NEULASTA [Suspect]
     Indication: CHEMOTHERAPY
     Route: 058
     Dates: start: 20090113, end: 20090203
  2. DOCETAXEL [Concomitant]
     Route: 042
     Dates: start: 20090112, end: 20090201
  3. DOXORUBICIN HCL [Concomitant]
     Route: 042
     Dates: start: 20090112, end: 20090201
  4. CYCLOPHOSPHAMIDE [Concomitant]
     Route: 042
     Dates: start: 20090112, end: 20090201
  5. GRANOCYTE [Concomitant]

REACTIONS (7)
  - AORTIC VALVE INCOMPETENCE [None]
  - DYSPNOEA [None]
  - ERYTHEMA [None]
  - HYPERSENSITIVITY [None]
  - LEUKOPENIA [None]
  - POOR PERIPHERAL CIRCULATION [None]
  - SWELLING [None]
